FAERS Safety Report 4955211-3 (Version None)
Quarter: 2006Q1

REPORT INFORMATION
  Report Type: 
  Country: None (occurrence: None)
  Receive Date: 20060322
  Receipt Date: 20060309
  Transmission Date: 20060701
  Serious: Yes (Other)
  Sender: FDA-Public Use
  Company Number: 2006034476

PATIENT
  Age: 72 Year
  Sex: Male

DRUGS (4)
  1. PHENYTOIN SODIUM [Suspect]
     Indication: ILL-DEFINED DISORDER
     Dosage: ORAL
     Route: 048
  2. TEMODAR [Suspect]
     Indication: GLIOMA
     Dosage: 75 MG/M*2, ORAL
     Route: 048
     Dates: start: 20051101, end: 20051223
  3. ALL OTHER THERAPEUTIC PRODUCTS (ALL OTHER THERAPEUTIC PRODUCTS) [Suspect]
     Indication: GLIOMA
  4. CORTICOSTEROIDS (CORTICOSTEROIDS) [Suspect]
     Indication: ILL-DEFINED DISORDER

REACTIONS (9)
  - ANTICONVULSANT TOXICITY [None]
  - ASTHENIA [None]
  - BRADYPHRENIA [None]
  - COORDINATION ABNORMAL [None]
  - DIFFICULTY IN WALKING [None]
  - FLAT AFFECT [None]
  - MYOPATHY STEROID [None]
  - NECROSIS [None]
  - NERVOUS SYSTEM DISORDER [None]
